FAERS Safety Report 17236348 (Version 1)
Quarter: 2020Q1

REPORT INFORMATION
  Report Type: Spontaneous
  Country: US (occurrence: US)
  Receive Date: 20200106
  Receipt Date: 20200106
  Transmission Date: 20200409
  Serious: No
  Sender: FDA-Public Use
  Company Number: US-GLAXOSMITHKLINE-US2019AMR208062

PATIENT
  Sex: Female
  Weight: 82 kg

DRUGS (1)
  1. NUCALA [Suspect]
     Active Substance: MEPOLIZUMAB
     Indication: ASTHMA
     Dosage: UNK, CYC
     Route: 065
     Dates: start: 20180312, end: 20180507

REACTIONS (6)
  - Fatigue [Unknown]
  - Dyspnoea [Unknown]
  - Nausea [Unknown]
  - Condition aggravated [Unknown]
  - Drug ineffective [Unknown]
  - Dizziness [Unknown]
